FAERS Safety Report 10475265 (Version 2)
Quarter: 2014Q3

REPORT INFORMATION
  Report Type: Spontaneous
  Country: GB (occurrence: GB)
  Receive Date: 20140925
  Receipt Date: 20140925
  Transmission Date: 20150326
  Serious: Yes (Hospitalization, Other)
  Sender: FDA-Public Use
  Company Number: PHFR2014GB002786

PATIENT
  Age: 47 Year
  Sex: Male

DRUGS (1)
  1. CLOZARIL [Suspect]
     Active Substance: CLOZAPINE
     Dosage: UKN
     Route: 048
     Dates: start: 20030402, end: 20140409

REACTIONS (3)
  - Cardiac arrest [Unknown]
  - Obstructive airways disorder [Unknown]
  - Choking [Unknown]

NARRATIVE: CASE EVENT DATE: 20140409
